FAERS Safety Report 7739205-0 (Version None)
Quarter: 2011Q3

REPORT INFORMATION
  Report Type: 
  Country: None (occurrence: None)
  Receive Date: 20110909
  Receipt Date: 20110905
  Transmission Date: 20111222
  Serious: Yes (Hospitalization)
  Sender: FDA-Public Use
  Company Number: GB-PFIZER INC-2011207748

PATIENT
  Age: 44 Year
  Sex: Female
  Weight: 62 kg

DRUGS (7)
  1. OMEPRAZOLE [Concomitant]
  2. SIMVASTATIN [Concomitant]
  3. SERTRALINE HYDROCHLORIDE [Suspect]
     Indication: DEPRESSION
     Dosage: UNK
     Route: 048
     Dates: end: 20100820
  4. FOLIC ACID [Concomitant]
  5. FUROSEMIDE [Concomitant]
  6. BISOPROLOL [Concomitant]
  7. CODEINE PHOSPHATE [Concomitant]

REACTIONS (3)
  - HYPERHIDROSIS [None]
  - COLD SWEAT [None]
  - ELECTROCARDIOGRAM QT PROLONGED [None]
